FAERS Safety Report 10665895 (Version 2)
Quarter: 2015Q1

REPORT INFORMATION
  Report Type: Spontaneous
  Country: US (occurrence: US)
  Receive Date: 20141219
  Receipt Date: 20150113
  Transmission Date: 20150720
  Serious: No
  Sender: FDA-Public Use
  Company Number: US-PFIZER INC-2014348480

PATIENT
  Age: 42 Year
  Sex: Female
  Weight: 96 kg

DRUGS (1)
  1. PHENYTOIN. [Suspect]
     Active Substance: PHENYTOIN
     Indication: SEIZURE
     Dosage: 200 MG, 2X/DAY

REACTIONS (1)
  - Anticonvulsant drug level decreased [Recovered/Resolved]
